FAERS Safety Report 10695232 (Version 2)
Quarter: 2015Q1

REPORT INFORMATION
  Report Type: Spontaneous
  Country: US (occurrence: US)
  Receive Date: 20150107
  Receipt Date: 20150114
  Transmission Date: 20150721
  Serious: No
  Sender: FDA-Public Use
  Company Number: US-EISAI MEDICAL RESEARCH-EC-2014-002808

PATIENT
  Sex: Female
  Weight: 83.9 kg

DRUGS (1)
  1. BELVIQ [Suspect]
     Active Substance: LORCASERIN HYDROCHLORIDE
     Indication: WEIGHT DECREASED
     Route: 048
     Dates: start: 20141228, end: 20150101

REACTIONS (8)
  - Headache [Recovering/Resolving]
  - Nausea [Recovering/Resolving]
  - Intentional underdose [Recovering/Resolving]
  - Palpitations [Not Recovered/Not Resolved]
  - Cough [Recovering/Resolving]
  - Chills [Recovered/Resolved]
  - Dizziness [Recovering/Resolving]
  - Heart rate decreased [Not Recovered/Not Resolved]

NARRATIVE: CASE EVENT DATE: 20141228
